FAERS Safety Report 4295936-9 (Version None)
Quarter: 2004Q1

REPORT INFORMATION
  Report Type: 
  Country: None (occurrence: None)
  Receive Date: 20040211
  Receipt Date: 20040128
  Transmission Date: 20041129
  Serious: Yes (Life-Threatening)
  Sender: FDA-Public Use
  Company Number: 2004-UK-00095UK

PATIENT
  Age: 71 Year
  Sex: Female

DRUGS (2)
  1. MICARDIS [Suspect]
     Indication: CARDIAC FAILURE CONGESTIVE
     Dosage: 40MG NOCTE PO
     Route: 048
     Dates: start: 20011228, end: 20020105
  2. ATENOLOL [Concomitant]

REACTIONS (1)
  - RENAL FAILURE ACUTE [None]
